FAERS Safety Report 6567273-0 (Version None)
Quarter: 2010Q1

REPORT INFORMATION
  Report Type: 
  Country: None (occurrence: None)
  Receive Date: 20100202
  Receipt Date: 20100121
  Transmission Date: 20100710
  Serious: Yes (Hospitalization)
  Sender: FDA-Public Use
  Company Number: DE-BAYER-201013386GPV

PATIENT
  Age: 82 Year
  Sex: Female
  Weight: 68 kg

DRUGS (11)
  1. ACETYLSALICYLIC ACID [Suspect]
     Indication: CEREBROVASCULAR ACCIDENT
     Route: 048
  2. XIPAMIDE [Interacting]
     Indication: HYPERTENSION
     Route: 048
     Dates: start: 20080601
  3. RAMIPRIL [Interacting]
     Indication: HYPERTENSION
     Route: 048
  4. TORSEMIDE [Interacting]
     Indication: HYPERTENSION
     Route: 048
     Dates: start: 20080601, end: 20090712
  5. BISOPROLOL [Interacting]
     Indication: HYPERTENSION
     Route: 048
     Dates: start: 20080601
  6. MOXONIDINE [Interacting]
     Indication: HYPERTENSION
     Route: 048
     Dates: start: 20080601
  7. VALORON N (NALOXONE HYDROCHLORIDE, TILIDINE HYDROCHLORIDE) [Interacting]
     Indication: PAIN
     Route: 048
     Dates: start: 20090701
  8. PANTOPRAZOLE [Concomitant]
     Indication: PROPHYLAXIS AGAINST GASTROINTESTINAL ULCER
     Route: 048
  9. METFORMIN HCL [Concomitant]
     Indication: TYPE 2 DIABETES MELLITUS
     Route: 048
     Dates: start: 20080601, end: 20090712
  10. ALLOPURINOL [Concomitant]
     Indication: HYPERURICAEMIA
     Route: 048
     Dates: start: 20080601, end: 20090712
  11. NOVALGIN [Concomitant]
     Indication: PAIN
     Route: 048

REACTIONS (6)
  - ACUTE PRERENAL FAILURE [None]
  - ALKALOSIS [None]
  - DEHYDRATION [None]
  - HYPOKALAEMIA [None]
  - HYPONATRAEMIA [None]
  - VOMITING [None]
